FAERS Safety Report 20113107 (Version 1)
Quarter: 2021Q4

REPORT INFORMATION
  Report Type: Spontaneous
  Country: US (occurrence: None)
  Receive Date: 20211124
  Receipt Date: 20211124
  Transmission Date: 20220303
  Serious: Yes (Disabling, Other)
  Sender: FDA-Public Use
  Company Number: None

PATIENT
  Age: 30 Year
  Sex: Male
  Weight: 112.5 kg

DRUGS (2)
  1. PAROXETINE [Suspect]
     Active Substance: PAROXETINE
     Indication: Panic disorder
     Dates: start: 20171101, end: 20180501
  2. PAROXETINE [Suspect]
     Active Substance: PAROXETINE
     Indication: Depression

REACTIONS (8)
  - Constipation [None]
  - Incorrect dose administered [None]
  - Libido decreased [None]
  - Anorgasmia [None]
  - Erectile dysfunction [None]
  - Anhedonia [None]
  - Gastrointestinal disorder [None]
  - Intervertebral disc protrusion [None]

NARRATIVE: CASE EVENT DATE: 20180501
